FAERS Safety Report 11855165 (Version 1)
Quarter: 2015Q4

REPORT INFORMATION
  Report Type: Spontaneous
  Country: GB (occurrence: GB)
  Receive Date: 20151221
  Receipt Date: 20151221
  Transmission Date: 20160305
  Serious: Yes (Congenital Anomaly)
  Sender: FDA-Public Use
  Company Number: GB-WATSON-2015-14656

PATIENT

DRUGS (4)
  1. CYCLIZINE (UNKNOWN) [Suspect]
     Active Substance: CYCLIZINE
     Indication: PRODUCT USED FOR UNKNOWN INDICATION
     Dosage: UNK
     Route: 064
     Dates: start: 20141013
  2. METOCLOPRAMIDE (UNKNOWN) [Suspect]
     Active Substance: METOCLOPRAMIDE
     Indication: PRODUCT USED FOR UNKNOWN INDICATION
     Dosage: 10 MG, DAILY
     Route: 064
     Dates: start: 20141013
  3. AVOMINE [Suspect]
     Active Substance: PROMETHAZINE TEOCLATE
     Indication: PRODUCT USED FOR UNKNOWN INDICATION
     Dosage: 25 MG, DAILY
     Route: 064
     Dates: start: 20140916
  4. ACIDEX                             /01521901/ [Suspect]
     Active Substance: CALCIUM CARBONATE\SODIUM ALGINATE\SODIUM BICARBONATE
     Indication: PRODUCT USED FOR UNKNOWN INDICATION
     Dosage: 5-10ML DAILY
     Route: 064
     Dates: start: 20140925

REACTIONS (7)
  - Patent ductus arteriosus [Unknown]
  - Atrial septal defect [Unknown]
  - Foetal growth restriction [Unknown]
  - Premature baby [Unknown]
  - Jaundice [Unknown]
  - Foetal exposure during pregnancy [Unknown]
  - Placental transfusion syndrome [Unknown]
